FAERS Safety Report 7888996-7 (Version None)
Quarter: 2011Q4

REPORT INFORMATION
  Report Type: 
  Country: None (occurrence: None)
  Receive Date: 20111103
  Receipt Date: 20111019
  Transmission Date: 20120403
  Serious: Yes (Other)
  Sender: FDA-Public Use
  Company Number: PHHY2011JP82689

PATIENT
  Sex: Female
  Weight: 46 kg

DRUGS (6)
  1. PREDNISOLONE [Concomitant]
     Dosage: 20 MG, UNK
     Route: 048
     Dates: start: 20110309
  2. ADALAT [Concomitant]
     Dosage: 40 MG, UNK
     Route: 048
     Dates: start: 20110309
  3. MYCOPHENOLATE MOFETIL (CELLCEPT) [Concomitant]
     Dosage: 2000 MG, UNK
     Route: 048
     Dates: start: 20110228
  4. LIPITOR [Concomitant]
     Dosage: 10 MG, UNK
     Route: 048
     Dates: start: 20110309
  5. DIOVAN [Concomitant]
     Dosage: 160 MG, UNK
     Route: 048
     Dates: start: 20110309
  6. NEORAL [Suspect]
     Indication: RENAL TRANSPLANT
     Dosage: 350 MG PER DAY
     Route: 048
     Dates: start: 20110228

REACTIONS (20)
  - BLOOD BILIRUBIN INCREASED [None]
  - NEPHROPATHY TOXIC [None]
  - CYTOMEGALOVIRUS INFECTION [None]
  - ANTI-ERYTHROCYTE ANTIBODY [None]
  - ANAEMIA [None]
  - NEUTROPHIL FUNCTION DISORDER [None]
  - BLOOD ALKALINE PHOSPHATASE INCREASED [None]
  - PYREXIA [None]
  - BLOOD UREA INCREASED [None]
  - BLOOD LACTATE DEHYDROGENASE INCREASED [None]
  - PYELONEPHRITIS [None]
  - URINE ABNORMALITY [None]
  - BLOOD CREATININE INCREASED [None]
  - URINARY TRACT INFECTION [None]
  - RENAL TUBULAR DISORDER [None]
  - ESCHERICHIA INFECTION [None]
  - SEPSIS [None]
  - HAEMOLYTIC ANAEMIA [None]
  - TOXICITY TO VARIOUS AGENTS [None]
  - URETERIC STENOSIS [None]
